FAERS Safety Report 7273989-3 (Version None)
Quarter: 2011Q1

REPORT INFORMATION
  Report Type: 
  Country: None (occurrence: None)
  Receive Date: 20110203
  Receipt Date: 20110128
  Transmission Date: 20110831
  Serious: Yes (Hospitalization)
  Sender: FDA-Public Use
  Company Number: US-GILEAD-2011-0035804

PATIENT
  Sex: Female

DRUGS (3)
  1. LETAIRIS [Suspect]
     Indication: PRODUCT USED FOR UNKNOWN INDICATION
     Route: 048
     Dates: start: 20080101
  2. ADCIRCA [Concomitant]
  3. SILDENAFIL [Concomitant]

REACTIONS (6)
  - HYPOKALAEMIA [None]
  - HYPOTENSION [None]
  - FALL [None]
  - GASTRITIS [None]
  - CONTUSION [None]
  - CHEST PAIN [None]
